FAERS Safety Report 5224992-6 (Version None)
Quarter: 2007Q1

REPORT INFORMATION
  Report Type: 
  Country: None (occurrence: None)
  Receive Date: 20070131
  Receipt Date: 20070125
  Transmission Date: 20070707
  Serious: Yes (Other)
  Sender: FDA-Public Use
  Company Number: JP-BRISTOL-MYERS SQUIBB COMPANY-13626932

PATIENT
  Age: 58 Year
  Sex: Male
  Weight: 62 kg

DRUGS (4)
  1. ENTECAVIR TABS [Suspect]
     Indication: HEPATITIS B
     Route: 048
     Dates: start: 20041124
  2. SEPAZON [Concomitant]
     Indication: INSOMNIA
     Route: 048
  3. SEPAZON [Concomitant]
     Indication: DEPRESSION
     Route: 048
  4. MAPROTILINE HCL [Concomitant]
     Indication: DEPRESSION
     Route: 048

REACTIONS (1)
  - CEREBRAL INFARCTION [None]
